FAERS Safety Report 21506390 (Version 1)
Quarter: 2022Q4

REPORT INFORMATION
  Report Type: Spontaneous
  Country: TW (occurrence: None)
  Receive Date: 20221026
  Receipt Date: 20221026
  Transmission Date: 20230113
  Serious: Yes (Death, Other)
  Sender: FDA-Public Use
  Company Number: TW-ROCHE-3206062

PATIENT
  Age: 65 Year
  Sex: Female

DRUGS (1)
  1. RITUXIMAB [Suspect]
     Active Substance: RITUXIMAB
     Indication: Diffuse large B-cell lymphoma
     Dosage: R-CHOP, RITUXIMAB-CONTAINING SALVAGE CHEMOTHERAPY
     Route: 065

REACTIONS (3)
  - Paraesthesia [Unknown]
  - Seizure [Unknown]
  - Disease progression [Fatal]
